FAERS Safety Report 4830929-1 (Version None)
Quarter: 2005Q4

REPORT INFORMATION
  Report Type: 
  Country: None (occurrence: None)
  Receive Date: 20051114
  Receipt Date: 20051101
  Transmission Date: 20060501
  Serious: Yes (Other)
  Sender: FDA-Public Use
  Company Number: 2005150672

PATIENT
  Age: 31 Year
  Sex: Female

DRUGS (2)
  1. TERRAMYCIN [Suspect]
     Indication: ACNE
     Dosage: 500 MG (250 MG, 2 IN 1 D), ORAL
     Route: 048
     Dates: start: 20051003, end: 20051025
  2. TRAMADOL HCL [Concomitant]

REACTIONS (3)
  - CHROMATURIA [None]
  - PRURITUS [None]
  - TOOTH EXTRACTION [None]
